FAERS Safety Report 5743597-1 (Version None)
Quarter: 2008Q2

REPORT INFORMATION
  Report Type: 
  Country: None (occurrence: None)
  Receive Date: 20080520
  Receipt Date: 20080514
  Transmission Date: 20081010
  Serious: Yes (Life-Threatening, Disabling)
  Sender: FDA-Public Use
  Company Number: US-BAYER-200822940NA

PATIENT
  Sex: Male

DRUGS (1)
  1. TRASYLOL [Suspect]
     Indication: CARDIAC OPERATION
     Dates: start: 20020802

REACTIONS (4)
  - CEREBROVASCULAR ACCIDENT [None]
  - INJURY [None]
  - POST PROCEDURAL COMPLICATION [None]
  - UNEVALUABLE EVENT [None]
